FAERS Safety Report 14993661 (Version 1)
Quarter: 2018Q2

REPORT INFORMATION
  Report Type: Spontaneous
  Country: US (occurrence: US)
  Receive Date: 20180611
  Receipt Date: 20180611
  Transmission Date: 20180711
  Serious: No
  Sender: FDA-Public Use
  Company Number: US-AMGEN-USASP2018076794

PATIENT
  Sex: Female
  Weight: 104.3 kg

DRUGS (4)
  1. ENBREL [Suspect]
     Active Substance: ETANERCEPT
     Indication: PSORIATIC ARTHROPATHY
     Dosage: UNK UNK, QWK
     Route: 065
  2. HUMIRA [Suspect]
     Active Substance: ADALIMUMAB
     Indication: PSORIATIC ARTHROPATHY
     Dosage: UNK UNK, Q2WK
     Route: 065
     Dates: start: 2018, end: 2018
  3. METHOTREXATE. [Suspect]
     Active Substance: METHOTREXATE
     Indication: PSORIATIC ARTHROPATHY
     Dosage: UNK UNK, QWK
     Route: 065
  4. METOPROLOL. [Concomitant]
     Active Substance: METOPROLOL
     Indication: HYPERTENSION
     Dosage: 100 MG, BID (TAKE HALF TABLET, BY MOUTH, TWICE DAILY)
     Route: 048
     Dates: start: 2013

REACTIONS (3)
  - Ill-defined disorder [Recovered/Resolved]
  - Vomiting [Recovered/Resolved]
  - Drug ineffective [Unknown]
